FAERS Safety Report 22209093 (Version 1)
Quarter: 2023Q2

REPORT INFORMATION
  Report Type: Report from Study
  Country: JP (occurrence: JP)
  Receive Date: 20230413
  Receipt Date: 20230413
  Transmission Date: 20230721
  Serious: Yes (Hospitalization, Other)
  Sender: FDA-Public Use
  Company Number: JP-Eisai-202211533_LEN-EC_P_1

PATIENT
  Age: 66 Year
  Sex: Female
  Weight: 56 kg

DRUGS (16)
  1. LUNESTA [Suspect]
     Active Substance: ESZOPICLONE
     Dosage: DOSE UNKNOWN
     Route: 048
  2. LENVIMA [Suspect]
     Active Substance: LENVATINIB
     Indication: Endometrial cancer recurrent
     Route: 048
     Dates: start: 20221011, end: 20221015
  3. LENVIMA [Suspect]
     Active Substance: LENVATINIB
     Dosage: 14 MG, QD
     Route: 048
     Dates: start: 20221016, end: 20221101
  4. LENVIMA [Suspect]
     Active Substance: LENVATINIB
     Dosage: 10 MG, QD
     Route: 048
     Dates: start: 20221108, end: 20221125
  5. KEYTRUDA [Suspect]
     Active Substance: PEMBROLIZUMAB
     Indication: Endometrial cancer recurrent
     Dosage: 200 MG PER 3 WEEKS
     Route: 041
     Dates: start: 20221011
  6. KEYTRUDA [Suspect]
     Active Substance: PEMBROLIZUMAB
     Dosage: 200 MG PER 3 WEEKS
     Route: 041
     Dates: start: 20221109
  7. KEYTRUDA [Suspect]
     Active Substance: PEMBROLIZUMAB
     Dosage: 400 MG PER 6 WEEKS
     Route: 041
     Dates: start: 20221227
  8. KEYTRUDA [Suspect]
     Active Substance: PEMBROLIZUMAB
     Dosage: 400 MG PER 6 WEEKS
     Route: 041
     Dates: start: 20230207
  9. KEYTRUDA [Suspect]
     Active Substance: PEMBROLIZUMAB
     Dosage: 400 MG PER 6 WEEKS
     Route: 041
     Dates: start: 20230328
  10. PACLITAXEL [Suspect]
     Active Substance: PACLITAXEL
     Indication: Endometrial cancer recurrent
     Dosage: DOSE UNKNOWN
     Route: 065
     Dates: start: 20210609, end: 20211005
  11. ZOLPIDEM TARTRATE [Suspect]
     Active Substance: ZOLPIDEM TARTRATE
     Dosage: DOSE UNKNOWN
     Route: 065
  12. DAYVIGO [Concomitant]
     Active Substance: LEMBOREXANT
     Indication: Delirium
     Dosage: IN CASE OF SLEEPLESSNESS
     Route: 048
     Dates: start: 20221128
  13. MIROGABALIN BESYLATE [Concomitant]
     Active Substance: MIROGABALIN BESYLATE
     Indication: Neuralgia
     Dosage: 5 MG, BID
     Route: 048
     Dates: start: 20221012
  14. LOXOPROFEN [Concomitant]
     Active Substance: LOXOPROFEN
     Indication: Neuralgia
     Dosage: 60 MG, TID
     Route: 048
     Dates: start: 20221012
  15. Rinderon [Concomitant]
     Indication: Palmar-plantar erythrodysaesthesia syndrome
     Dosage: 1 MG, QD
     Route: 061
     Dates: start: 20221013
  16. ROZEREM [Concomitant]
     Active Substance: RAMELTEON
     Indication: Delirium
     Dosage: 8 MG, QD
     Route: 048
     Dates: start: 20221128

REACTIONS (9)
  - Altered state of consciousness [Recovering/Resolving]
  - Delirium [Recovering/Resolving]
  - Abnormal behaviour [Recovering/Resolving]
  - Hypothyroidism [Recovering/Resolving]
  - Palmar-plantar erythrodysaesthesia syndrome [Recovering/Resolving]
  - Platelet count decreased [Recovering/Resolving]
  - Proteinuria [Recovering/Resolving]
  - Renal disorder [Recovering/Resolving]
  - Neuralgia [Unknown]

NARRATIVE: CASE EVENT DATE: 20221013
